FAERS Safety Report 12552933 (Version 1)
Quarter: 2016Q3

REPORT INFORMATION
  Report Type: Spontaneous
  Country: US (occurrence: None)
  Receive Date: 20160712
  Receipt Date: 20160712
  Transmission Date: 20161109
  Serious: Yes (Hospitalization)
  Sender: FDA-Public Use
  Company Number: None

PATIENT
  Age: 74 Year
  Sex: Male
  Weight: 90.4 kg

DRUGS (1)
  1. COLCHICINE. [Suspect]
     Active Substance: COLCHICINE
     Route: 048
     Dates: start: 20160407, end: 20160419

REACTIONS (2)
  - Acute kidney injury [None]
  - Diarrhoea [None]

NARRATIVE: CASE EVENT DATE: 20160420
